FAERS Safety Report 14108278 (Version 1)
Quarter: 2017Q4

REPORT INFORMATION
  Report Type: Spontaneous
  Country: DE (occurrence: DE)
  Receive Date: 20171019
  Receipt Date: 20171019
  Transmission Date: 20180321
  Serious: Yes (Death)
  Sender: FDA-Public Use
  Company Number: DE-PFIZER INC-2013374145

PATIENT
  Age: 21 Year
  Sex: Male

DRUGS (3)
  1. ETOMIDATE. [Suspect]
     Active Substance: ETOMIDATE
  2. DIAZEPAM. [Suspect]
     Active Substance: DIAZEPAM
  3. PROPOFOL. [Suspect]
     Active Substance: PROPOFOL
     Dosage: UNK
     Route: 042

REACTIONS (3)
  - Accidental death [Fatal]
  - Drug abuse [Fatal]
  - Toxicity to various agents [Fatal]
